FAERS Safety Report 4870348-5 (Version None)
Quarter: 2006Q1

REPORT INFORMATION
  Report Type: 
  Country: None (occurrence: None)
  Receive Date: 20060103
  Receipt Date: 20030603
  Transmission Date: 20060701
  Serious: Yes (Hospitalization)
  Sender: FDA-Public Use
  Company Number: US-BOEHRINGER INGELHEIM PHARM. INC.-2003-BP-03634BP

PATIENT
  Sex: Female
  Weight: 67.6 kg

DRUGS (9)
  1. MICARDIS [Suspect]
     Indication: ESSENTIAL HYPERTENSION
     Route: 048
     Dates: start: 20030520, end: 20030530
  2. MICARDIS [Suspect]
     Route: 048
     Dates: start: 20030505, end: 20030519
  3. LANOXIN [Concomitant]
     Indication: ARRHYTHMIA
     Route: 048
     Dates: start: 19950101, end: 20030529
  4. ALENDRONATE SODIUM [Concomitant]
  5. FLUTICASONE PROPIONATE [Concomitant]
  6. FLUVASTATIN [Concomitant]
  7. MAXAIR [Concomitant]
     Indication: WHEEZING
  8. MAXAIR [Concomitant]
     Indication: DYSPNOEA
  9. SYNTHROID [Concomitant]

REACTIONS (4)
  - ANAEMIA [None]
  - ATRIAL FIBRILLATION [None]
  - CELLULITIS [None]
  - RENAL FAILURE ACUTE [None]
